FAERS Safety Report 20083351 (Version 1)
Quarter: 2021Q4

REPORT INFORMATION
  Report Type: Spontaneous
  Country: US (occurrence: US)
  Receive Date: 20211117
  Receipt Date: 20211117
  Transmission Date: 20220304
  Serious: Yes (Other)
  Sender: FDA-Public Use
  Company Number: US-BRISTOL-MYERS SQUIBB COMPANY-BMS-2021-121448

PATIENT
  Sex: Male

DRUGS (1)
  1. OPDIVO [Suspect]
     Active Substance: NIVOLUMAB
     Indication: Prostate cancer
     Dosage: 480 MILLIGRAM, Q4WK
     Route: 042
     Dates: end: 20210216

REACTIONS (5)
  - Hypothyroidism [Unknown]
  - Rash pruritic [Unknown]
  - Mucosal inflammation [Unknown]
  - Liver function test increased [Unknown]
  - Intentional product use issue [Unknown]
